FAERS Safety Report 4984257-4 (Version None)
Quarter: 2006Q2

REPORT INFORMATION
  Report Type: 
  Country: None (occurrence: None)
  Receive Date: 20060427
  Receipt Date: 20060419
  Transmission Date: 20061013
  Serious: Yes (Disabling, Other)
  Sender: FDA-Public Use
  Company Number: PHBS2006HR05605

PATIENT
  Age: 31 Year
  Sex: Male
  Weight: 82 kg

DRUGS (4)
  1. CLOZAPINE [Suspect]
     Indication: STRESS
     Dosage: 25 MG/D
     Route: 048
     Dates: start: 20051107, end: 20060329
  2. CLOZAPINE [Suspect]
     Dosage: 12.5 MG, QHS
     Route: 048
     Dates: start: 20060401
  3. ATHYRAZOL [Concomitant]
     Dosage: 10 MG/D
     Route: 065
  4. CIPRALEX [Concomitant]
     Dosage: 10 MG/D
     Route: 065

REACTIONS (4)
  - DEPRESSED LEVEL OF CONSCIOUSNESS [None]
  - HYPERSOMNIA [None]
  - IMPAIRED WORK ABILITY [None]
  - WEIGHT INCREASED [None]
